FAERS Safety Report 9178416 (Version 3)
Quarter: 2013Q4

REPORT INFORMATION
  Report Type: Spontaneous
  Country: FR (occurrence: FR)
  Receive Date: 20130321
  Receipt Date: 20131008
  Transmission Date: 20140711
  Serious: Yes (Death, Hospitalization, Other)
  Sender: FDA-Public Use
  Company Number: FR-ELI_LILLY_AND_COMPANY-FR201303004275

PATIENT
  Age: 55 Year
  Sex: Male
  Weight: 85 kg

DRUGS (14)
  1. EFIENT [Suspect]
     Indication: MYOCARDIAL INFARCTION
     Dosage: 60 MG, UNK
     Dates: start: 20130301, end: 20130301
  2. EFIENT [Suspect]
     Indication: ACUTE CORONARY SYNDROME
     Dosage: 10 MG, QD
     Route: 048
     Dates: start: 20130301, end: 20130311
  3. ASPIRIN [Concomitant]
     Indication: MYOCARDIAL INFARCTION
     Dosage: 75 MG, UNK
     Dates: start: 20130301, end: 20130311
  4. ASPIRIN [Concomitant]
     Indication: ACUTE CORONARY SYNDROME
  5. KARDEGIC [Concomitant]
     Dosage: 75 MG, QD
     Route: 048
     Dates: start: 20130301, end: 20130311
  6. NICOTINELL [Concomitant]
     Dosage: 21 MG, QD
  7. LANTUS [Concomitant]
     Dosage: 30 IU, EACH EVENING
  8. TAHOR [Concomitant]
     Dosage: 80 MG, QD
  9. PROCORALAN [Concomitant]
     Dosage: 5 MG, BID
  10. JANUVIA [Concomitant]
     Dosage: 100 MG, QD
  11. INEXIUM [Concomitant]
     Dosage: 20 MG, QD
  12. DIFFU K [Concomitant]
  13. BISOPROLOL [Concomitant]
     Dosage: 5 MG, QD
  14. LASILIX [Concomitant]
     Dosage: 20 MG, QD

REACTIONS (5)
  - Thrombosis in device [Fatal]
  - Cardiogenic shock [Fatal]
  - Myocardial infarction [Fatal]
  - Acute pulmonary oedema [Recovering/Resolving]
  - Drug ineffective [Not Recovered/Not Resolved]
